FAERS Safety Report 15221994 (Version 1)
Quarter: 2018Q3

REPORT INFORMATION
  Report Type: Spontaneous
  Country: US (occurrence: US)
  Receive Date: 20180731
  Receipt Date: 20180731
  Transmission Date: 20181010
  Serious: Yes (Hospitalization)
  Sender: FDA-Public Use
  Company Number: US-R-PHARM US LLC-2018RPM00043

PATIENT
  Age: 37 Year
  Sex: Female
  Weight: 97.51 kg

DRUGS (7)
  1. IXEMPRA [Suspect]
     Active Substance: IXABEPILONE
     Indication: BREAST CANCER METASTATIC
  2. MORPHINE [Concomitant]
     Active Substance: MORPHINE
  3. ZOFRAN [Concomitant]
     Active Substance: ONDANSETRON HYDROCHLORIDE
  4. IXEMPRA [Suspect]
     Active Substance: IXABEPILONE
     Indication: TRIPLE NEGATIVE BREAST CANCER
  5. IXEMPRA [Suspect]
     Active Substance: IXABEPILONE
     Indication: HER-2 POSITIVE BREAST CANCER
     Dosage: 87 MG, EVERY 21 DAYS FOR 2 CYCLES
     Route: 042
     Dates: start: 20180521, end: 20180618
  6. DECADRON [Concomitant]
     Active Substance: DEXAMETHASONE
  7. DURAGESIC [Concomitant]
     Active Substance: FENTANYL

REACTIONS (11)
  - Hypocalcaemia [Unknown]
  - Neutropenia [Recovered/Resolved]
  - Acute kidney injury [Unknown]
  - Hypokalaemia [Unknown]
  - Skin exfoliation [Recovered/Resolved]
  - Dehydration [Unknown]
  - Mucosal inflammation [Recovered/Resolved]
  - Oral candidiasis [Unknown]
  - Hypomagnesaemia [Unknown]
  - Pancytopenia [Recovering/Resolving]
  - Pneumonia [Unknown]

NARRATIVE: CASE EVENT DATE: 20180525
